FAERS Safety Report 7102768-2 (Version None)
Quarter: 2010Q4

REPORT INFORMATION
  Report Type: 
  Country: None (occurrence: None)
  Receive Date: 20101115
  Receipt Date: 20101103
  Transmission Date: 20110411
  Serious: Yes (Other)
  Sender: FDA-Public Use
  Company Number: GB-BAYER-200710216BNE

PATIENT
  Age: 27 Year
  Sex: Male

DRUGS (11)
  1. IBUPROFEN [Suspect]
     Dates: start: 20020820
  2. NUROFEN [Suspect]
     Dates: start: 20020820
  3. CODEINE [Suspect]
     Dates: start: 20020820
  4. PAROXETINE HCL [Suspect]
     Indication: PHOBIA
     Dates: start: 19990901, end: 20021201
  5. LOFEPRAMINE [Suspect]
  6. ASPIRIN [Suspect]
     Indication: PRODUCT USED FOR UNKNOWN INDICATION
  7. COCAINE [Concomitant]
  8. METHYLENEDIOXYMETHAMPHETAMINE [Concomitant]
  9. FLUOXETINE [Concomitant]
  10. LITHIUM [Concomitant]
  11. ALCOHOL [Concomitant]

REACTIONS (1)
  - SUICIDE ATTEMPT [None]
